FAERS Safety Report 10328754 (Version 2)
Quarter: 2014Q3

REPORT INFORMATION
  Report Type: Report from Study
  Country: US (occurrence: US)
  Receive Date: 20140721
  Receipt Date: 20140825
  Transmission Date: 20150326
  Serious: Yes (Hospitalization)
  Sender: FDA-Public Use
  Company Number: US-SA-2014SA093730

PATIENT
  Age: 69 Year
  Sex: Male
  Weight: 69.7 kg

DRUGS (12)
  1. PAXIL [Concomitant]
     Active Substance: PAROXETINE HYDROCHLORIDE
  2. OCTREOTIDE [Suspect]
     Active Substance: OCTREOTIDE
     Indication: PROSTATE CANCER METASTATIC
     Route: 030
     Dates: start: 20140702
  3. NEXIUM [Concomitant]
     Active Substance: ESOMEPRAZOLE MAGNESIUM
  4. CREON [Concomitant]
     Active Substance: PANCRELIPASE AMYLASE\PANCRELIPASE LIPASE\PANCRELIPASE PROTEASE
  5. FLOMAX [Concomitant]
     Active Substance: TAMSULOSIN HYDROCHLORIDE
  6. TIMOLOL [Concomitant]
     Active Substance: TIMOLOL
  7. JEVTANA [Suspect]
     Active Substance: CABAZITAXEL
     Indication: PROSTATE CANCER METASTATIC
     Route: 042
     Dates: start: 20140702
  8. METFORMIN [Concomitant]
     Active Substance: METFORMIN HYDROCHLORIDE
  9. SIMVASTATIN. [Concomitant]
     Active Substance: SIMVASTATIN
  10. BYETTA [Concomitant]
     Active Substance: EXENATIDE
  11. NATEGLINIDE. [Concomitant]
     Active Substance: NATEGLINIDE
  12. FINASTERIDE. [Concomitant]
     Active Substance: FINASTERIDE

REACTIONS (3)
  - Fall [Unknown]
  - Incoherent [Unknown]
  - Confusional state [Unknown]

NARRATIVE: CASE EVENT DATE: 20140702
